FAERS Safety Report 5474826-X (Version None)
Quarter: 2007Q4

REPORT INFORMATION
  Report Type: 
  Country: None (occurrence: None)
  Receive Date: 20071002
  Receipt Date: 20070926
  Transmission Date: 20080405
  Serious: Yes (Death)
  Sender: FDA-Public Use
  Company Number: JP-MERCK-0707USA01114

PATIENT
  Age: 77 Year
  Sex: Male

DRUGS (15)
  1. PEPCID RPD [Suspect]
     Indication: ABDOMINAL PAIN UPPER
     Route: 048
     Dates: start: 20070502, end: 20070711
  2. ETODOLAC [Suspect]
     Indication: PAIN
     Route: 048
     Dates: end: 20070711
  3. DOGMATYL [Concomitant]
     Indication: DEPRESSION
     Route: 048
     Dates: end: 20070711
  4. FLUTAMIDE [Concomitant]
     Indication: PROSTATE CANCER
     Route: 048
     Dates: start: 20050801, end: 20070711
  5. ACTONEL [Concomitant]
     Route: 048
  6. CANDESARTAN CILEXETIL [Concomitant]
     Route: 048
  7. GASMOTIN [Concomitant]
     Indication: ABDOMINAL PAIN UPPER
     Route: 048
     Dates: end: 20070711
  8. NOVAMIN (PROCHLORPERAZINE MESYLATE) [Concomitant]
     Indication: NAUSEA
     Route: 048
     Dates: end: 20070711
  9. HARNAL [Concomitant]
     Route: 048
  10. MAGNESIUM OXIDE [Concomitant]
     Indication: CONSTIPATION
     Route: 048
     Dates: end: 20070711
  11. NAUZELIN [Concomitant]
     Indication: NAUSEA
     Route: 048
     Dates: end: 20070711
  12. PURSENNID [Concomitant]
     Indication: CONSTIPATION
     Route: 048
     Dates: end: 20070711
  13. FENTANYL [Concomitant]
     Indication: PAIN
     Route: 048
     Dates: end: 20070711
  14. OXYCODONE HYDROCHLORIDE [Concomitant]
     Indication: PAIN
     Route: 048
     Dates: end: 20070711
  15. ZOLADEX [Concomitant]
     Indication: PROSTATE CANCER
     Route: 042
     Dates: start: 20050801

REACTIONS (1)
  - INTERSTITIAL LUNG DISEASE [None]
